FAERS Safety Report 4280875-X (Version None)
Quarter: 2004Q1

REPORT INFORMATION
  Report Type: 
  Country: None (occurrence: None)
  Receive Date: 20040128
  Receipt Date: 20040128
  Transmission Date: 20041129
  Serious: Yes (Life-Threatening)
  Sender: FDA-Public Use
  Company Number: None

PATIENT
  Age: 33 Year
  Sex: Female
  Weight: 60.782 kg

DRUGS (2)
  1. REMICADE [Suspect]
     Indication: CROHN'S DISEASE
     Dosage: 300 MG ONCE INTRAVENOUS
     Route: 042
     Dates: start: 20030916, end: 20030916
  2. REMICADE [Suspect]
     Indication: CROHN'S DISEASE
     Dates: start: 20031002, end: 20031002

REACTIONS (10)
  - CHEST DISCOMFORT [None]
  - CHILLS [None]
  - ERYTHEMA [None]
  - HEADACHE [None]
  - HEART RATE INCREASED [None]
  - NAUSEA [None]
  - PAIN [None]
  - PYREXIA [None]
  - RASH [None]
  - SENSATION OF FOREIGN BODY [None]
